FAERS Safety Report 11905063 (Version 2)
Quarter: 2016Q2

REPORT INFORMATION
  Report Type: Spontaneous
  Country: US (occurrence: US)
  Receive Date: 20160111
  Receipt Date: 20160524
  Transmission Date: 20160815
  Serious: Yes (Other)
  Sender: FDA-Public Use
  Company Number: US-BEH-2016057682

PATIENT
  Sex: Female
  Weight: 65 kg

DRUGS (16)
  1. OXYGEN. [Concomitant]
     Active Substance: OXYGEN
  2. MUCINEX ER [Concomitant]
  3. SYNTHROID [Concomitant]
     Active Substance: LEVOTHYROXINE SODIUM
  4. CLONAZEPAM. [Concomitant]
     Active Substance: CLONAZEPAM
  5. HIZENTRA [Suspect]
     Active Substance: HUMAN IMMUNOGLOBULIN G
  6. ACETAMINOPHEN. [Concomitant]
     Active Substance: ACETAMINOPHEN
  7. TOBRAMYCIN. [Concomitant]
     Active Substance: TOBRAMYCIN
  8. PREDNISONE. [Concomitant]
     Active Substance: PREDNISONE
  9. HIZENTRA [Suspect]
     Active Substance: HUMAN IMMUNOGLOBULIN G
     Indication: IMMUNODEFICIENCY COMMON VARIABLE
     Dosage: 1 GM 5 ML VIALS
     Route: 058
  10. DIPHENHYDRAMINE. [Concomitant]
     Active Substance: DIPHENHYDRAMINE
  11. HIZENTRA [Suspect]
     Active Substance: HUMAN IMMUNOGLOBULIN G
     Dosage: 4 GM 20 ML VIAL
     Route: 058
  12. EPIPEN [Concomitant]
     Active Substance: EPINEPHRINE
  13. NAMENDA [Concomitant]
     Active Substance: MEMANTINE HYDROCHLORIDE
  14. KEPPRA [Concomitant]
     Active Substance: LEVETIRACETAM
  15. LIDOCAINE/PRILOCAINE [Concomitant]
     Active Substance: LIDOCAINE\PRILOCAINE
  16. ZOLOFT [Concomitant]
     Active Substance: SERTRALINE HYDROCHLORIDE

REACTIONS (2)
  - Feeding tube complication [Unknown]
  - Device related infection [Unknown]
